FAERS Safety Report 17452342 (Version 1)
Quarter: 2020Q1

REPORT INFORMATION
  Report Type: Spontaneous
  Country: US (occurrence: US)
  Receive Date: 20200224
  Receipt Date: 20200224
  Transmission Date: 20200409
  Serious: No
  Sender: FDA-Public Use
  Company Number: US-ASTRAZENECA-2020SE24402

PATIENT
  Sex: Male

DRUGS (2)
  1. VITAMIN D [Concomitant]
     Active Substance: VITAMIN D NOS
  2. SYNAGIS [Suspect]
     Active Substance: PALIVIZUMAB
     Indication: PROPHYLAXIS
     Route: 030

REACTIONS (1)
  - Influenza [Unknown]
